FAERS Safety Report 5090850-3 (Version None)
Quarter: 2006Q3

REPORT INFORMATION
  Report Type: 
  Country: None (occurrence: None)
  Receive Date: 20060823
  Receipt Date: 20060804
  Transmission Date: 20061208
  Serious: Yes (Other)
  Sender: FDA-Public Use
  Company Number: WAES 0608NLD00003

PATIENT
  Age: 75 Year
  Sex: Female

DRUGS (4)
  1. TAB MK-0524A UNK [Suspect]
     Dosage: DAILY/PO
     Route: 048
     Dates: start: 20060803, end: 20060803
  2. ZOCOR [Suspect]
     Dosage: 10 MG/DAILY/PO
     Route: 048
     Dates: start: 20060803, end: 20060803
  3. CALCIUM CARBONATE [Concomitant]
  4. GLUCOSAMINE [Concomitant]

REACTIONS (11)
  - CHILLS [None]
  - DISORIENTATION [None]
  - ERYTHEMA [None]
  - FEELING HOT [None]
  - FLUSHING [None]
  - HYPERSENSITIVITY [None]
  - LOSS OF CONSCIOUSNESS [None]
  - PARAESTHESIA [None]
  - SYNCOPE [None]
  - URTICARIA [None]
  - VOMITING [None]
